FAERS Safety Report 17792718 (Version 1)
Quarter: 2020Q2

REPORT INFORMATION
  Report Type: Spontaneous
  Country: NL (occurrence: NL)
  Receive Date: 20200515
  Receipt Date: 20200515
  Transmission Date: 20200714
  Serious: Yes (Other)
  Sender: FDA-Public Use
  Company Number: NL-MYLANLABS-2020M1047342

PATIENT
  Age: 47 Year
  Sex: Male
  Weight: 100 kg

DRUGS (1)
  1. TERBINAFINE. [Suspect]
     Active Substance: TERBINAFINE
     Indication: ONYCHOMYCOSIS
     Dosage: 250 MILLIGRAM, QD (PIL, 250MG, 1XD, 1 X 250 MG)
     Dates: start: 201911, end: 20200221

REACTIONS (2)
  - Cystitis [Recovering/Resolving]
  - Pelvic infection [Recovering/Resolving]

NARRATIVE: CASE EVENT DATE: 20200217
